FAERS Safety Report 12358274 (Version 2)
Quarter: 2016Q2

REPORT INFORMATION
  Report Type: Spontaneous
  Country: ES (occurrence: ES)
  Receive Date: 20160512
  Receipt Date: 20160610
  Transmission Date: 20160815
  Serious: Yes (Other)
  Sender: FDA-Public Use
  Company Number: PHHY2016ES064392

PATIENT

DRUGS (1)
  1. EXJADE [Suspect]
     Active Substance: DEFERASIROX
     Indication: PRODUCT USED FOR UNKNOWN INDICATION
     Dosage: 500 MG/24 HOURS
     Route: 048
     Dates: start: 20160319, end: 20160323

REACTIONS (7)
  - Perivascular dermatitis [Unknown]
  - Rash [Unknown]
  - Purpura [Unknown]
  - Dermatitis [Unknown]
  - Rash maculo-papular [Unknown]
  - Pruritus [Unknown]
  - Toxic skin eruption [Recovered/Resolved]

NARRATIVE: CASE EVENT DATE: 20160322
